FAERS Safety Report 17594275 (Version 2)
Quarter: 2020Q2

REPORT INFORMATION
  Report Type: Spontaneous
  Country: CN (occurrence: CN)
  Receive Date: 20200327
  Receipt Date: 20200406
  Transmission Date: 20200713
  Serious: Yes (Hospitalization)
  Sender: FDA-Public Use
  Company Number: CN-PFIZER INC-2020126337

PATIENT
  Age: 41 Year
  Sex: Male
  Weight: 72 kg

DRUGS (2)
  1. ZITHROMAX [Suspect]
     Active Substance: AZITHROMYCIN DIHYDRATE
     Indication: SKIN INFECTION
     Dosage: 2 DF, 1X/DAY
     Route: 048
     Dates: start: 20200313, end: 20200314
  2. NIAO SU ZHI [Concomitant]
     Indication: ECZEMA
     Dosage: 1 G, 2X/DAY
     Dates: start: 20200313, end: 20200323

REACTIONS (2)
  - Chest pain [Recovering/Resolving]
  - Palpitations [Recovering/Resolving]

NARRATIVE: CASE EVENT DATE: 20200313
